FAERS Safety Report 20193716 (Version 1)
Quarter: 2021Q4

REPORT INFORMATION
  Report Type: Spontaneous
  Country: CA (occurrence: CA)
  Receive Date: 20211216
  Receipt Date: 20211216
  Transmission Date: 20220303
  Serious: Yes (Other)
  Sender: FDA-Public Use
  Company Number: CA-SAMSUNG BIOEPIS-SB-2021-28884

PATIENT
  Age: 57 Year
  Sex: Female
  Weight: 65 kg

DRUGS (2)
  1. INFLIXIMAB [Suspect]
     Active Substance: INFLIXIMAB
     Indication: Rheumatoid arthritis
     Route: 042
  2. MELOXICAM [Concomitant]
     Active Substance: MELOXICAM
     Indication: Condition aggravated
     Dosage: UNKNOWN
     Route: 048

REACTIONS (8)
  - Pyrexia [Unknown]
  - Blood pressure fluctuation [Unknown]
  - Breast mass [Unknown]
  - Heart rate increased [Unknown]
  - Hypotension [Unknown]
  - Weight decreased [Unknown]
  - Inappropriate schedule of product administration [Unknown]
  - Off label use [Unknown]
